FAERS Safety Report 10567234 (Version 1)
Quarter: 2014Q4

REPORT INFORMATION
  Report Type: Other
  Country: GB (occurrence: GB)
  Receive Date: 20141105
  Receipt Date: 20141105
  Transmission Date: 20150529
  Serious: Yes (Hospitalization)
  Sender: FDA-Public Use
  Company Number: GB-MYLANLABS-2014M1008778

PATIENT

DRUGS (1)
  1. AZITHROMYCIN [Suspect]
     Active Substance: AZITHROMYCIN ANHYDROUS
     Indication: ASPERGILLOMA
     Dosage: 250 MG, 3XW
     Route: 048

REACTIONS (2)
  - Electrocardiogram QT prolonged [Unknown]
  - Dyspnoea [Unknown]
